FAERS Safety Report 11993376 (Version 2)
Quarter: 2017Q1

REPORT INFORMATION
  Report Type: Spontaneous
  Country: AU (occurrence: AU)
  Receive Date: 20160203
  Receipt Date: 20170220
  Transmission Date: 20170428
  Serious: Yes (Hospitalization, Other)
  Sender: FDA-Public Use
  Company Number: AU-SUN PHARMACEUTICAL INDUSTRIES LTD-2016R1-110348

PATIENT
  Age: 33 Year
  Sex: Female

DRUGS (1)
  1. PROPYLTHIOURACIL. [Suspect]
     Active Substance: PROPYLTHIOURACIL
     Indication: THYROID THERAPY
     Dosage: UNK
     Route: 065
     Dates: start: 2013

REACTIONS (4)
  - Hepatic failure [Unknown]
  - Exposure during pregnancy [Unknown]
  - Jaundice [Unknown]
  - Hypoglycaemia [Unknown]
